FAERS Safety Report 24388991 (Version 2)
Quarter: 2024Q4

REPORT INFORMATION
  Report Type: Spontaneous
  Country: US (occurrence: US)
  Receive Date: 20241002
  Receipt Date: 20241113
  Transmission Date: 20250114
  Serious: Yes (Hospitalization, Other)
  Sender: Unknown Manufacturer
  Company Number: US-THERATECHNOLOGIES INC.-2024-THE-IBA-000381

PATIENT

DRUGS (3)
  1. TROGARZO [Suspect]
     Active Substance: IBALIZUMAB-UIYK
     Indication: HIV infection
     Dosage: 2000 MG, SINGLE, LOADING DOSE
     Route: 042
  2. TROGARZO [Suspect]
     Active Substance: IBALIZUMAB-UIYK
     Dosage: 800 MG, EVERY 2 WEEKS, MAINTENANCE DOSE
     Route: 042
  3. TROGARZO [Suspect]
     Active Substance: IBALIZUMAB-UIYK
     Dosage: 800 MG, EVERY 2 WEEKS
     Route: 042
     Dates: start: 20241030, end: 20241030

REACTIONS (10)
  - Metabolic disorder [Recovered/Resolved]
  - Blood magnesium decreased [Recovered/Resolved]
  - Tinnitus [Recovered/Resolved]
  - Vitreous floaters [Recovered/Resolved]
  - Dizziness [Recovered/Resolved]
  - Hypoaesthesia [Recovered/Resolved]
  - Vision blurred [Recovered/Resolved]
  - Tunnel vision [Recovered/Resolved]
  - Hypoacusis [Recovered/Resolved]
  - Product preparation error [Recovered/Resolved]

NARRATIVE: CASE EVENT DATE: 20240801
